FAERS Safety Report 5239641-0 (Version None)
Quarter: 2007Q1

REPORT INFORMATION
  Report Type: 
  Country: None (occurrence: None)
  Receive Date: 20070216
  Receipt Date: 20070208
  Transmission Date: 20070707
  Serious: Yes (Other)
  Sender: FDA-Public Use
  Company Number: FR-GLAXOSMITHKLINE-B0458383A

PATIENT
  Sex: Female

DRUGS (3)
  1. ZOFRAN [Suspect]
     Dosage: 8MG PER DAY
     Route: 042
     Dates: start: 20070122, end: 20070122
  2. ZOFRAN [Suspect]
     Indication: NAUSEA
     Dosage: 8MG TWICE PER DAY
     Route: 048
     Dates: start: 20070124, end: 20070128
  3. DETICENE [Suspect]
     Dosage: 850MGM2 PER DAY
     Route: 042
     Dates: start: 20070122, end: 20070122

REACTIONS (2)
  - CHOLESTASIS [None]
  - HEPATOCELLULAR DAMAGE [None]
